FAERS Safety Report 11390237 (Version 1)
Quarter: 2015Q3

REPORT INFORMATION
  Report Type: Spontaneous
  Country: US (occurrence: US)
  Receive Date: 20150818
  Receipt Date: 20150818
  Transmission Date: 20151125
  Serious: No
  Sender: FDA-Public Use
  Company Number: US-ROCHE-1403338

PATIENT
  Age: 54 Year
  Sex: Male

DRUGS (4)
  1. RIBASPHERE RIBAPAK [Suspect]
     Active Substance: RIBAVIRIN
     Indication: CYSTOCELE REPAIR
     Dosage: 600 QAM (EVERY DAY BEFORE NOON) AND 400 MG QPM (EVERY EVENING)
     Route: 048
     Dates: start: 20140514
  2. PEGASYS [Suspect]
     Active Substance: PEGINTERFERON ALFA-2A
     Indication: CYSTOCELE REPAIR
     Route: 058
     Dates: start: 20140514
  3. PROZAC [Concomitant]
     Active Substance: FLUOXETINE HYDROCHLORIDE
  4. SOVALDI [Suspect]
     Active Substance: SOFOSBUVIR
     Indication: CYSTOCELE REPAIR
     Route: 048
     Dates: start: 20140514

REACTIONS (4)
  - Headache [Not Recovered/Not Resolved]
  - Head discomfort [Unknown]
  - Epistaxis [Unknown]
  - Myalgia [Not Recovered/Not Resolved]

NARRATIVE: CASE EVENT DATE: 20140514
